FAERS Safety Report 8080948-X (Version None)
Quarter: 2012Q1

REPORT INFORMATION
  Report Type: 
  Country: None (occurrence: None)
  Receive Date: 20120130
  Receipt Date: 20120120
  Transmission Date: 20120608
  Serious: Yes (Hospitalization)
  Sender: FDA-Public Use
  Company Number: US-BAYER-201041496NA

PATIENT
  Age: 32 Year
  Sex: Female
  Weight: 83.5 kg

DRUGS (11)
  1. IRON [Concomitant]
     Dosage: 325 MG, TID
     Route: 048
  2. ZYRTEC [Concomitant]
  3. YASMIN [Suspect]
     Indication: ACNE
  4. MAXALT [Concomitant]
     Indication: HEADACHE
  5. VITAMIN K TAB [Concomitant]
  6. COUMADIN [Concomitant]
     Indication: THROMBOSIS
  7. FLONASE [Concomitant]
     Dosage: 0.05 MG, QD
  8. NORCO [Concomitant]
     Indication: PAIN
  9. DROSPIRENONE AND ETHINYL ESTRADIOL [Suspect]
     Indication: ACNE
  10. YAZ [Suspect]
     Indication: ACNE
  11. FRESH FROZEN PLASMA [Concomitant]

REACTIONS (2)
  - THROMBOPHLEBITIS SUPERFICIAL [None]
  - INJURY [None]
